FAERS Safety Report 9797037 (Version 1)
Quarter: 2014Q1

REPORT INFORMATION
  Report Type: Report from Study
  Country: US (occurrence: US)
  Receive Date: 20140105
  Receipt Date: 20140105
  Transmission Date: 20141002
  Serious: Yes (Other)
  Sender: FDA-Public Use
  Company Number: US-ROCHE-1327776

PATIENT
  Age: 4 Year
  Sex: Male
  Weight: 19.73 kg

DRUGS (5)
  1. NUTROPIN AQ [Suspect]
     Indication: HYPOPITUITARISM
     Dosage: AT NIGHT 6 TIMES PER WEEK
     Route: 058
     Dates: start: 2011
  2. SYNTHROID [Concomitant]
     Route: 048
  3. SYNTHROID [Concomitant]
     Route: 048
  4. CORTEF [Concomitant]
     Route: 048
  5. SOLU-CORTEF [Concomitant]
     Dosage: PRN
     Route: 030
     Dates: start: 20130912, end: 20131014

REACTIONS (1)
  - Blood cortisol decreased [Unknown]
